FAERS Safety Report 24057763 (Version 1)
Quarter: 2024Q3

REPORT INFORMATION
  Report Type: Other
  Country: ID (occurrence: ID)
  Receive Date: 20240707
  Receipt Date: 20240707
  Transmission Date: 20241017
  Serious: Yes (Hospitalization)
  Sender: DEXCEL
  Company Number: ID-DEXPHARM-2024-2083

PATIENT
  Age: 51 Year
  Sex: Male
  Weight: 63 kg

DRUGS (13)
  1. METHOTREXATE [Interacting]
     Active Substance: METHOTREXATE
  2. CETIRIZINE [Suspect]
     Active Substance: CETIRIZINE HYDROCHLORIDE
  3. LORATADINE [Suspect]
     Active Substance: LORATADINE
  4. CHLORPHENIRAMINE MALEATE [Suspect]
     Active Substance: CHLORPHENIRAMINE MALEATE
  5. OMEPRAZOLE [Interacting]
     Active Substance: OMEPRAZOLE
  6. CEFTRIAXONE [Concomitant]
     Active Substance: CEFTRIAXONE\CEFTRIAXONE SODIUM
  7. METOCLOPRAMIDE [Concomitant]
     Active Substance: METOCLOPRAMIDE
  8. FOLIC ACID [Concomitant]
     Active Substance: FOLIC ACID
  9. CALCIUM [Concomitant]
     Active Substance: CALCIUM
  10. ALBUMIN HUMAN [Concomitant]
     Active Substance: ALBUMIN HUMAN
  11. ACETAMINOPHEN [Concomitant]
     Active Substance: ACETAMINOPHEN
  12. DEXTROSE [Concomitant]
     Active Substance: DEXTROSE\DEXTROSE MONOHYDRATE
  13. SODIUM CHLORIDE [Concomitant]
     Active Substance: SODIUM CHLORIDE

REACTIONS (2)
  - Dry mouth [Not Recovered/Not Resolved]
  - Drug interaction [Not Recovered/Not Resolved]
